FAERS Safety Report 23843771 (Version 1)
Quarter: 2024Q2

REPORT INFORMATION
  Report Type: Spontaneous
  Country: ES (occurrence: None)
  Receive Date: 20240510
  Receipt Date: 20240510
  Transmission Date: 20240716
  Serious: Yes (Other)
  Sender: FDA-Public Use
  Company Number: 2024A105322

PATIENT
  Age: 67 Year
  Sex: Male
  Weight: 62 kg

DRUGS (4)
  1. DAPAGLIFLOZIN [Suspect]
     Active Substance: DAPAGLIFLOZIN
     Indication: Nephropathy
     Route: 048
     Dates: start: 20240418, end: 20240425
  2. HIDROFEROL 0 [Concomitant]
     Indication: Vitamin D decreased
     Dosage: IRREGULAR
     Route: 048
     Dates: start: 20240418
  3. PITAVASTATIN [Concomitant]
     Active Substance: PITAVASTATIN
     Indication: Type IIa hyperlipidaemia
     Dosage: 28 TABLETS
     Route: 048
     Dates: start: 20191203
  4. LOSARTAN POTASSIUM [Concomitant]
     Active Substance: LOSARTAN POTASSIUM
     Dosage: 28 TABLETS
     Route: 048
     Dates: start: 20180419

REACTIONS (1)
  - Rectal haemorrhage [Recovered/Resolved]

NARRATIVE: CASE EVENT DATE: 20240419
